FAERS Safety Report 12605084 (Version 1)
Quarter: 2016Q3

REPORT INFORMATION
  Report Type: Report from Study
  Country: US (occurrence: US)
  Receive Date: 20160728
  Receipt Date: 20160728
  Transmission Date: 20161109
  Serious: Yes (Hospitalization, Other)
  Sender: FDA-Public Use
  Company Number: US-BIOGEN-2014BI113079

PATIENT
  Age: 61 Year
  Sex: Female
  Weight: 72.64 kg

DRUGS (15)
  1. CALCIUM VIT D [Concomitant]
     Active Substance: CALCIUM\CHOLECALCIFEROL
     Indication: PRODUCT USED FOR UNKNOWN INDICATION
     Route: 065
  2. VITAMIN D3 [Concomitant]
     Active Substance: CHOLECALCIFEROL
     Indication: PRODUCT USED FOR UNKNOWN INDICATION
     Route: 065
  3. TECFIDERA [Suspect]
     Active Substance: DIMETHYL FUMARATE
     Indication: RELAPSING-REMITTING MULTIPLE SCLEROSIS
     Dosage: MAINTENANCE DOSE
     Route: 048
  4. LORTAB [Concomitant]
     Active Substance: ACETAMINOPHEN\HYDROCODONE BITARTRATE
     Indication: PRODUCT USED FOR UNKNOWN INDICATION
     Route: 065
  5. PROBIOTICS [Concomitant]
     Active Substance: PROBIOTICS NOS
     Indication: PRODUCT USED FOR UNKNOWN INDICATION
     Route: 065
  6. TRAMADOL. [Concomitant]
     Active Substance: TRAMADOL
     Indication: PRODUCT USED FOR UNKNOWN INDICATION
     Route: 065
  7. AMPYRA [Concomitant]
     Active Substance: DALFAMPRIDINE
     Indication: PRODUCT USED FOR UNKNOWN INDICATION
     Route: 065
     Dates: start: 201407
  8. MVI [Concomitant]
     Active Substance: VITAMINS
     Indication: PRODUCT USED FOR UNKNOWN INDICATION
     Route: 065
  9. TECFIDERA [Suspect]
     Active Substance: DIMETHYL FUMARATE
     Dosage: MAINTENANCE DOSE
     Route: 048
     Dates: start: 201406
  10. LUTEIN [Concomitant]
     Active Substance: LUTEIN
     Indication: PRODUCT USED FOR UNKNOWN INDICATION
     Route: 065
  11. TURMERIC [Concomitant]
     Active Substance: TURMERIC
     Indication: PRODUCT USED FOR UNKNOWN INDICATION
     Route: 065
  12. ZANAFLEX [Concomitant]
     Active Substance: TIZANIDINE HYDROCHLORIDE
     Indication: PRODUCT USED FOR UNKNOWN INDICATION
     Route: 065
  13. TECFIDERA [Suspect]
     Active Substance: DIMETHYL FUMARATE
     Dosage: STARTER DOSE
     Route: 048
     Dates: start: 201406, end: 201406
  14. BACLOFEN. [Concomitant]
     Active Substance: BACLOFEN
     Indication: PRODUCT USED FOR UNKNOWN INDICATION
     Route: 065
  15. TYLENOL [Concomitant]
     Active Substance: ACETAMINOPHEN
     Indication: PRODUCT USED FOR UNKNOWN INDICATION
     Route: 065

REACTIONS (21)
  - Blood pressure increased [Recovered/Resolved]
  - Multiple sclerosis relapse [Not Recovered/Not Resolved]
  - Upper limb fracture [Recovered/Resolved]
  - Muscular weakness [Not Recovered/Not Resolved]
  - Psychotic disorder [Recovered/Resolved]
  - White blood cell count decreased [Recovered/Resolved]
  - Renal failure [Recovered/Resolved]
  - Alopecia [Not Recovered/Not Resolved]
  - Confusional state [Recovered/Resolved]
  - Speech disorder [Recovered/Resolved]
  - Balance disorder [Not Recovered/Not Resolved]
  - Multiple sclerosis [Not Recovered/Not Resolved]
  - Urinary tract infection [Recovered/Resolved]
  - Limb injury [Unknown]
  - Lymphocyte count decreased [Recovered/Resolved]
  - Urosepsis [Recovered/Resolved]
  - Soft tissue injury [Not Recovered/Not Resolved]
  - Asthenia [Not Recovered/Not Resolved]
  - Abasia [Not Recovered/Not Resolved]
  - Fall [Recovered/Resolved]
  - Gait disturbance [Not Recovered/Not Resolved]

NARRATIVE: CASE EVENT DATE: 201410
